FAERS Safety Report 25324784 (Version 1)
Quarter: 2025Q2

REPORT INFORMATION
  Report Type: Spontaneous
  Country: US (occurrence: None)
  Receive Date: 20250516
  Receipt Date: 20250516
  Transmission Date: 20250716
  Serious: Yes (Other)
  Sender: FDA-CTU
  Company Number: None

PATIENT
  Age: 70 Year
  Sex: Female
  Weight: 51.75 kg

DRUGS (4)
  1. MIEBO [Suspect]
     Active Substance: PERFLUOROHEXYLOCTANE
     Indication: Dry eye
     Dosage: 1 DROP(S) 4 TIMES A DAY OPHTHALMIC
     Route: 047
     Dates: start: 20250515, end: 20250515
  2. Lumify, [Concomitant]
  3. NASACORT [Concomitant]
     Active Substance: TRIAMCINOLONE ACETONIDE
  4. ASPIRIN [Concomitant]
     Active Substance: ASPIRIN

REACTIONS (9)
  - Nasal congestion [None]
  - Dizziness [None]
  - Nausea [None]
  - Dry eye [None]
  - Eye irritation [None]
  - Middle insomnia [None]
  - Oropharyngeal pain [None]
  - Ocular hyperaemia [None]
  - Hangover [None]

NARRATIVE: CASE EVENT DATE: 20250515
